FAERS Safety Report 7915998-4 (Version None)
Quarter: 2011Q4

REPORT INFORMATION
  Report Type: 
  Country: None (occurrence: None)
  Receive Date: 20111115
  Receipt Date: 20111107
  Transmission Date: 20120403
  Serious: Yes (Hospitalization, Other)
  Sender: FDA-Public Use
  Company Number: DE-AMGEN-DEUSP2011058225

PATIENT
  Age: 76 Year
  Sex: Male

DRUGS (1)
  1. ARANESP [Suspect]
     Indication: ANAEMIA
     Dosage: UNK UNK, QWK

REACTIONS (2)
  - HAEMOGLOBIN DECREASED [None]
  - NEOPLASM MALIGNANT [None]
